FAERS Safety Report 4840735-X (Version None)
Quarter: 2005Q4

REPORT INFORMATION
  Report Type: 
  Country: None (occurrence: None)
  Receive Date: 20051130
  Receipt Date: 20031125
  Transmission Date: 20060501
  Serious: Yes (Life-Threatening, Other)
  Sender: FDA-Public Use
  Company Number: FR-AVENTIS-200314474FR

PATIENT
  Age: 17 Year
  Sex: Female
  Weight: 61 kg

DRUGS (6)
  1. KETEK [Suspect]
     Indication: NASOPHARYNGITIS
     Route: 048
     Dates: start: 20030923, end: 20030928
  2. SOLU-MEDROL [Suspect]
     Route: 048
     Dates: start: 20030923, end: 20030928
  3. OROPIVALONE [Suspect]
     Route: 048
     Dates: start: 20030923
  4. DOLIPRANE [Suspect]
     Indication: NASOPHARYNGEAL DISORDER
     Route: 048
     Dates: start: 20031031
  5. ORACEFAL [Concomitant]
     Indication: NASOPHARYNGEAL DISORDER
     Dates: start: 20031031
  6. NUREFLEX [Concomitant]
     Indication: NASOPHARYNGEAL DISORDER
     Dates: start: 20031031

REACTIONS (31)
  - ACUTE RESPIRATORY DISTRESS SYNDROME [None]
  - CORNEAL NEOVASCULARISATION [None]
  - CORNEAL SCAR [None]
  - EYE INJURY [None]
  - GASTROINTESTINAL INJURY [None]
  - GENITAL LESION [None]
  - HAEMODYNAMIC INSTABILITY [None]
  - HEPATOCELLULAR DAMAGE [None]
  - HERPES VIRUS INFECTION [None]
  - HYPERKALAEMIA [None]
  - LACTIC ACIDOSIS [None]
  - LEUKOPENIA [None]
  - METABOLIC ACIDOSIS [None]
  - NAIL GROWTH ABNORMAL [None]
  - OBSTRUCTIVE AIRWAYS DISORDER [None]
  - PHARYNGEAL LESION [None]
  - PHOTOPHOBIA [None]
  - PLEURAL EFFUSION [None]
  - PNEUMONIA [None]
  - PNEUMOTHORAX [None]
  - RESPIRATORY DISTRESS [None]
  - RHABDOMYOLYSIS [None]
  - SCAR [None]
  - SEPTIC SHOCK [None]
  - SHOCK [None]
  - SKIN DISCOLOURATION [None]
  - STREPTOCOCCAL INFECTION [None]
  - THROMBOCYTOPENIA [None]
  - TOXIC EPIDERMAL NECROLYSIS [None]
  - VISUAL ACUITY REDUCED [None]
  - WEIGHT DECREASED [None]
